FAERS Safety Report 9187170 (Version 1)
Quarter: 2013Q1

REPORT INFORMATION
  Report Type: Report from Study
  Country: GB (occurrence: GB)
  Receive Date: 20130322
  Receipt Date: 20130322
  Transmission Date: 20140127
  Serious: Yes (Other)
  Sender: FDA-Public Use
  Company Number: GB-VERTEX PHARMACEUTICALS INC.-2013-003968

PATIENT
  Sex: 0

DRUGS (3)
  1. INCIVO [Suspect]
     Indication: PRODUCT USED FOR UNKNOWN INDICATION
     Route: 048
  2. STATINS [Concomitant]
  3. ANTI-HYPERTENSIVE [Concomitant]

REACTIONS (3)
  - Eosinophil count increased [Not Recovered/Not Resolved]
  - Blood creatinine increased [Recovered/Resolved]
  - Pruritus [Unknown]
